FAERS Safety Report 4721419-5 (Version None)
Quarter: 2005Q3

REPORT INFORMATION
  Report Type: 
  Country: None (occurrence: None)
  Receive Date: 20050721
  Receipt Date: 20040818
  Transmission Date: 20060218
  Serious: Yes (Hospitalization)
  Sender: FDA-Public Use
  Company Number: US-BRISTOL-MYERS SQUIBB COMPANY-12676318

PATIENT
  Age: 63 Year
  Sex: Female
  Weight: 75 kg

DRUGS (8)
  1. COUMADIN [Suspect]
     Indication: HEART VALVE REPLACEMENT
     Dosage: 3MG X 6 DAYS PER WK + 1.5 MG ON SUNDAY ONLY=19.5; DOSE INCREASED TO 10 MG ON 8/17/04, 7.5 MG ON 8/18
     Route: 048
  2. PERSANTIN [Concomitant]
     Route: 048
  3. LIPITOR [Concomitant]
     Route: 048
  4. NIASPAN [Concomitant]
     Route: 048
  5. PREMARIN [Concomitant]
     Dosage: 0.625
     Route: 048
  6. COREG [Concomitant]
     Route: 048
  7. ALTACE [Concomitant]
     Route: 048
  8. LANOXIN [Concomitant]
     Dosage: 0.125MG
     Route: 048

REACTIONS (1)
  - INTERNATIONAL NORMALISED RATIO DECREASED [None]
